FAERS Safety Report 20848936 (Version 1)
Quarter: 2022Q2

REPORT INFORMATION
  Report Type: Spontaneous
  Country: KW (occurrence: KW)
  Receive Date: 20220519
  Receipt Date: 20220519
  Transmission Date: 20220721
  Serious: Yes (Other)
  Sender: FDA-Public Use
  Company Number: KW-NOVARTISPH-NVSC2022KW112268

PATIENT
  Age: 24 Year
  Sex: Female

DRUGS (11)
  1. DEXAMETHASONE [Suspect]
     Active Substance: DEXAMETHASONE
     Indication: Adjuvant therapy
     Dosage: UNK
     Route: 065
  2. NITRIC OXIDE [Suspect]
     Active Substance: NITRIC OXIDE
     Indication: Adjuvant therapy
     Dosage: UNK
     Route: 055
  3. HEPARIN [Suspect]
     Active Substance: HEPARIN SODIUM
     Indication: Adjuvant therapy
     Dosage: UNK
     Route: 065
  4. ZERBAXA [Suspect]
     Active Substance: CEFTOLOZANE SULFATE\TAZOBACTAM SODIUM
     Indication: Acinetobacter infection
     Dosage: UNK
     Route: 065
  5. ZERBAXA [Suspect]
     Active Substance: CEFTOLOZANE SULFATE\TAZOBACTAM SODIUM
     Indication: Pseudomonas infection
  6. TIGECYCLINE [Suspect]
     Active Substance: TIGECYCLINE
     Indication: Acinetobacter infection
     Dosage: UNK
     Route: 065
  7. TIGECYCLINE [Suspect]
     Active Substance: TIGECYCLINE
     Indication: Pseudomonas infection
  8. COLISTIN [Suspect]
     Active Substance: COLISTIN
     Indication: Acinetobacter infection
     Dosage: UNK
     Route: 065
  9. COLISTIN [Suspect]
     Active Substance: COLISTIN
     Indication: Pseudomonas infection
  10. ANIDULAFUNGIN [Suspect]
     Active Substance: ANIDULAFUNGIN
     Indication: Acinetobacter infection
     Dosage: UNK
     Route: 065
  11. ANIDULAFUNGIN [Suspect]
     Active Substance: ANIDULAFUNGIN
     Indication: Pseudomonas infection

REACTIONS (2)
  - Premature delivery [Unknown]
  - Maternal exposure during pregnancy [Unknown]
